FAERS Safety Report 11117931 (Version 3)
Quarter: 2015Q3

REPORT INFORMATION
  Report Type: Spontaneous
  Country: FI (occurrence: FI)
  Receive Date: 20150518
  Receipt Date: 20150922
  Transmission Date: 20151125
  Serious: Yes (Death, Hospitalization, Other)
  Sender: FDA-Public Use
  Company Number: FI-ROCHE-1577479

PATIENT
  Age: 69 Year
  Sex: Female

DRUGS (5)
  1. CARDACE (FINLAND) [Concomitant]
     Indication: HYPERTENSION
     Route: 048
     Dates: start: 20100730, end: 20150416
  2. XELODA [Suspect]
     Active Substance: CAPECITABINE
     Indication: RECTAL CANCER
     Route: 048
     Dates: start: 20150330, end: 20150407
  3. AMLODIPINE [Concomitant]
     Active Substance: AMLODIPINE BESYLATE
     Indication: HYPERTENSION
     Route: 048
     Dates: start: 20100802, end: 20150416
  4. PRIMASPAN [Concomitant]
     Indication: PROPHYLAXIS
     Route: 048
     Dates: start: 20100729, end: 20150408
  5. SIMVASTATIN. [Concomitant]
     Active Substance: SIMVASTATIN
     Indication: HYPERCHOLESTEROLAEMIA
     Route: 048
     Dates: start: 20120522, end: 20150413

REACTIONS (5)
  - Bone marrow failure [Fatal]
  - Inflammation [Fatal]
  - Enterococcal sepsis [Unknown]
  - Dihydropyrimidine dehydrogenase deficiency [Unknown]
  - Pneumonia bacterial [Unknown]

NARRATIVE: CASE EVENT DATE: 201504
